FAERS Safety Report 5928490-3 (Version None)
Quarter: 2008Q4

REPORT INFORMATION
  Report Type: 
  Country: None (occurrence: None)
  Receive Date: 20081023
  Receipt Date: 20081015
  Transmission Date: 20090506
  Serious: Yes (Hospitalization)
  Sender: FDA-Public Use
  Company Number: PHHO2006JP12981

PATIENT
  Sex: Male

DRUGS (17)
  1. STI571/CGP57148B T35717+CAPS [Suspect]
     Indication: GASTROINTESTINAL STROMAL TUMOUR
     Dosage: 400 MG, QD
     Route: 048
     Dates: start: 20051006, end: 20051017
  2. STI571/CGP57148B T35717+CAPS [Suspect]
     Dosage: 300 MG, QD
     Route: 048
     Dates: start: 20051018, end: 20060907
  3. RABEPRAZOLE SODIUM [Concomitant]
  4. HALCION [Concomitant]
  5. HARNAL [Concomitant]
  6. EUGLUCON [Concomitant]
  7. HERBESSOR R [Concomitant]
  8. ITOROL [Concomitant]
  9. EXCELASE [Concomitant]
  10. GENTACIN [Concomitant]
  11. MYSLEE [Concomitant]
  12. STROCAIN [Concomitant]
  13. GANATON [Concomitant]
  14. HIRUDOID [Concomitant]
  15. CRAVIT [Concomitant]
     Dosage: UNK
     Dates: start: 20080816
  16. BLADDERON [Concomitant]
     Dosage: UNK
     Dates: start: 20060818
  17. HALCION [Concomitant]
     Dosage: UNK
     Dates: start: 20051016

REACTIONS (5)
  - CONDITION AGGRAVATED [None]
  - PROSTATE CANCER [None]
  - SENSORY DISTURBANCE [None]
  - SURGERY [None]
  - TRANSURETHRAL PROSTATECTOMY [None]
